FAERS Safety Report 6267739-7 (Version None)
Quarter: 2009Q3

REPORT INFORMATION
  Report Type: 
  Country: None (occurrence: None)
  Receive Date: 20090714
  Receipt Date: 20090703
  Transmission Date: 20100115
  Serious: Yes (Hospitalization, Disabling, Other)
  Sender: FDA-Public Use
  Company Number: IT-CELGENEUS-083-21880-08111261

PATIENT
  Sex: Male
  Weight: 97 kg

DRUGS (25)
  1. REVLIMID [Suspect]
     Indication: DIFFUSE LARGE B-CELL LYMPHOMA
     Route: 048
     Dates: start: 20080628
  2. REVLIMID [Suspect]
     Route: 048
     Dates: start: 20080918, end: 20080927
  3. ENDOXAN [Suspect]
     Indication: DIFFUSE LARGE B-CELL LYMPHOMA
     Route: 065
     Dates: start: 20080628
  4. ENDOXAN [Suspect]
     Route: 065
     Dates: start: 20080918
  5. ADRIBLASTIN [Suspect]
     Indication: DIFFUSE LARGE B-CELL LYMPHOMA
     Route: 065
     Dates: start: 20080628
  6. VINCRISTINE [Suspect]
     Indication: DIFFUSE LARGE B-CELL LYMPHOMA
     Route: 065
     Dates: start: 20080628, end: 20080926
  7. PREDNISONE TAB [Suspect]
     Indication: DIFFUSE LARGE B-CELL LYMPHOMA
     Route: 065
     Dates: start: 20080628
  8. PREDNISONE TAB [Suspect]
     Route: 065
     Dates: start: 20080918
  9. RITUXIMAB [Suspect]
     Indication: DIFFUSE LARGE B-CELL LYMPHOMA
     Route: 065
     Dates: start: 20080628
  10. RITUXIMAB [Suspect]
     Route: 065
     Dates: start: 20080918
  11. BACTRIM [Concomitant]
     Route: 048
     Dates: start: 20080830, end: 20090109
  12. BACTRIM [Concomitant]
  13. ZEFFIX [Concomitant]
     Route: 048
     Dates: start: 20080826
  14. ZEFFIX [Concomitant]
  15. LIMPIDEX [Concomitant]
     Route: 048
     Dates: start: 20080830
  16. LIMPIDEX [Concomitant]
  17. LANOXIN [Concomitant]
     Dosage: 0.25
     Route: 048
     Dates: start: 20080830
  18. LANOXIN [Concomitant]
  19. ZYLORIC [Concomitant]
     Route: 048
     Dates: start: 20080830
  20. ZYLORIC [Concomitant]
  21. POLASE [Concomitant]
     Route: 048
     Dates: start: 20081117
  22. POLASE [Concomitant]
  23. ZOVIRAX [Concomitant]
     Indication: DRUG USE FOR UNKNOWN INDICATION
     Route: 048
     Dates: start: 20080830
  24. SPORANOX [Concomitant]
     Indication: DRUG USE FOR UNKNOWN INDICATION
     Route: 048
     Dates: start: 20080830
  25. LEVOXACIN [Concomitant]
     Indication: DRUG USE FOR UNKNOWN INDICATION
     Route: 048
     Dates: start: 20080830

REACTIONS (20)
  - ASTHENIA [None]
  - BLOOD CULTURE POSITIVE [None]
  - BLOOD SODIUM DECREASED [None]
  - CONDITION AGGRAVATED [None]
  - ELECTROCARDIOGRAM LOW VOLTAGE [None]
  - ESCHERICHIA INFECTION [None]
  - HYPOACUSIS [None]
  - HYPOKALAEMIA [None]
  - HYPOTENSION [None]
  - NEUROTOXICITY [None]
  - PANCYTOPENIA [None]
  - PERIPHERAL SENSORIMOTOR NEUROPATHY [None]
  - PERIPHERAL SENSORY NEUROPATHY [None]
  - PYREXIA [None]
  - QRS AXIS ABNORMAL [None]
  - RESPIRATORY ALKALOSIS [None]
  - SINUS TACHYCARDIA [None]
  - URINARY TRACT INFECTION PSEUDOMONAL [None]
  - VENTRICULAR EXTRASYSTOLES [None]
  - VENTRICULAR HYPERTROPHY [None]
